FAERS Safety Report 5927979-0 (Version None)
Quarter: 2008Q4

REPORT INFORMATION
  Report Type: 
  Country: None (occurrence: None)
  Receive Date: 20081023
  Receipt Date: 20081020
  Transmission Date: 20090506
  Serious: Yes (Death)
  Sender: FDA-Public Use
  Company Number: US-ASTRAZENECA-2008UW23212

PATIENT
  Age: 46 Year
  Sex: Male

DRUGS (3)
  1. SEROQUEL [Suspect]
     Indication: AGITATED DEPRESSION
     Route: 048
  2. PAXIL [Suspect]
  3. XANAX [Suspect]

REACTIONS (2)
  - COMPLETED SUICIDE [None]
  - OVERDOSE [None]
